FAERS Safety Report 7349144-5 (Version None)
Quarter: 2011Q1

REPORT INFORMATION
  Report Type: 
  Country: None (occurrence: None)
  Receive Date: 20110303
  Receipt Date: 20110222
  Transmission Date: 20110831
  Serious: Yes (Hospitalization)
  Sender: FDA-Public Use
  Company Number: DSJ-2011-03795

PATIENT
  Age: 69 Year
  Sex: Female

DRUGS (2)
  1. OLMETEC (OLMESARTAN MEDOXOMIL) (TABLET) (OLMESARTAN MEDOXOMIL) [Suspect]
     Indication: HYPERTENSION
     Dosage: 10 MG, PER ORAL
     Route: 048
     Dates: end: 20110222
  2. AMLODIPINE [Concomitant]

REACTIONS (1)
  - NEUTROPHIL COUNT DECREASED [None]
